FAERS Safety Report 13662051 (Version 1)
Quarter: 2017Q2

REPORT INFORMATION
  Report Type: Report from Study
  Country: ES (occurrence: ES)
  Receive Date: 20170616
  Receipt Date: 20170616
  Transmission Date: 20170830
  Serious: Yes (Death)
  Sender: FDA-Public Use
  Company Number: ES-EXELIXIS-CABO-17009446

PATIENT
  Age: 22 Year
  Sex: Male

DRUGS (1)
  1. COMETRIQ [Suspect]
     Active Substance: CABOZANTINIB S-MALATE
     Indication: PAPILLARY THYROID CANCER
     Dosage: 140 MG, QD
     Route: 048

REACTIONS (1)
  - Death [Fatal]
